FAERS Safety Report 5592851-5 (Version None)
Quarter: 2008Q1

REPORT INFORMATION
  Report Type: 
  Country: None (occurrence: None)
  Receive Date: 20080116
  Receipt Date: 20080109
  Transmission Date: 20080703
  Serious: Yes (Hospitalization)
  Sender: FDA-Public Use
  Company Number: PHBS2008CL00505

PATIENT
  Age: 71 Year
  Sex: Female

DRUGS (3)
  1. TAREG D [Suspect]
     Indication: HYPERTENSION
     Dosage: VALS 80 /HCT 12.5 MG/DAY
     Route: 048
  2. TAREG D [Suspect]
     Dosage: VALS 160 / HCT 12.5 MG/DAY
     Route: 048
  3. ANTI-FLU [Concomitant]

REACTIONS (2)
  - FACIAL BONES FRACTURE [None]
  - FALL [None]
